FAERS Safety Report 5949018-8 (Version None)
Quarter: 2008Q4

REPORT INFORMATION
  Report Type: 
  Country: None (occurrence: None)
  Receive Date: 20081111
  Receipt Date: 20081030
  Transmission Date: 20090506
  Serious: Yes (Other)
  Sender: FDA-Public Use
  Company Number: FR-PFIZER INC-2008081455

PATIENT
  Sex: Female
  Weight: 78 kg

DRUGS (3)
  1. LYRICA [Suspect]
     Indication: PAIN
     Dates: start: 20070208, end: 20080923
  2. DAFALGAN [Concomitant]
     Route: 048
     Dates: start: 20070208
  3. ACETAMINOPHEN [Concomitant]
     Indication: PAIN
     Dosage: DAILY DOSE:4GRAM
     Route: 048
     Dates: start: 20080301

REACTIONS (3)
  - BLOOD CREATINE PHOSPHOKINASE INCREASED [None]
  - CYTOLYTIC HEPATITIS [None]
  - TRANSAMINASES INCREASED [None]
